FAERS Safety Report 8463056-5 (Version None)
Quarter: 2012Q2

REPORT INFORMATION
  Report Type: 
  Country: None (occurrence: None)
  Receive Date: 20120323
  Receipt Date: 20111107
  Transmission Date: 20120825
  Serious: Yes (Hospitalization)
  Sender: FDA-Public Use
  Company Number: 163-21880-11111058

PATIENT
  Age: 86 Year
  Sex: Female

DRUGS (9)
  1. DIGOXIN [Concomitant]
  2. GLYBURIDE [Concomitant]
  3. LENALIDOMIDE [Suspect]
     Indication: MYELODYSPLASTIC SYNDROME
     Dosage: 10 MG, X 28 CAPS, PO
     Route: 048
     Dates: start: 20111019
  4. LEVOXYL [Concomitant]
  5. CRESTOR [Concomitant]
  6. PRILOSEC [Concomitant]
  7. FUROSEMIDE [Concomitant]
  8. IRON (IRON) [Concomitant]
  9. DILTAIZEM HCL DR (DILTIAZEM HYDROCHLORIDE) [Concomitant]

REACTIONS (3)
  - WHITE BLOOD CELL COUNT DECREASED [None]
  - RENAL FAILURE [None]
  - SEPSIS [None]
